FAERS Safety Report 6536963-8 (Version None)
Quarter: 2010Q1

REPORT INFORMATION
  Report Type: 
  Country: None (occurrence: None)
  Receive Date: 20100107
  Receipt Date: 20091223
  Transmission Date: 20100710
  Serious: Yes (Other)
  Sender: FDA-Public Use
  Company Number: 2009AP005129

PATIENT
  Age: 65 Year
  Sex: Male

DRUGS (5)
  1. TERAZOSIN HCL [Suspect]
  2. FLOMAX [Suspect]
  3. SAW PALMETTO [Suspect]
  4. PREDNISOLONE [Concomitant]
  5. HOMATROPINE [Concomitant]

REACTIONS (4)
  - CHOROIDAL DETACHMENT [None]
  - INTRAOCULAR PRESSURE INCREASED [None]
  - VISUAL ACUITY REDUCED [None]
  - VISUAL FIELD DEFECT [None]
